FAERS Safety Report 19129003 (Version 1)
Quarter: 2021Q2

REPORT INFORMATION
  Report Type: Spontaneous
  Country: ES (occurrence: ES)
  Receive Date: 20210413
  Receipt Date: 20210413
  Transmission Date: 20210717
  Serious: Yes (Hospitalization)
  Sender: FDA-Public Use
  Company Number: NVSC2021ES073350

PATIENT
  Age: 85 Year
  Sex: Female

DRUGS (2)
  1. FUROSEMIDE. [Suspect]
     Active Substance: FUROSEMIDE
     Indication: CARDIAC FAILURE
     Dosage: 40 MG, QD (40MG 1 VEZ AL DIA)
     Route: 048
     Dates: start: 20210117
  2. HIGROTONA [Interacting]
     Active Substance: CHLORTHALIDONE
     Indication: CARDIAC FAILURE
     Dosage: 75 MG, QW (25MG 3 VECES POR SEMANA  50 MG COMPRIMIDOS , 30 COMPRIMIDOS)
     Route: 048
     Dates: start: 20191004, end: 20210312

REACTIONS (1)
  - Hypokalaemia [Recovered/Resolved]

NARRATIVE: CASE EVENT DATE: 20210312
